FAERS Safety Report 24584246 (Version 1)
Quarter: 2024Q4

REPORT INFORMATION
  Report Type: Spontaneous
  Country: US (occurrence: None)
  Receive Date: 20241105
  Receipt Date: 20241105
  Transmission Date: 20250115
  Serious: No
  Sender: Public
  Company Number: None

PATIENT
  Age: 15 Year
  Sex: Female
  Weight: 56.25 kg

DRUGS (1)
  1. DULERA [Suspect]
     Active Substance: FORMOTEROL FUMARATE DIHYDRATE\MOMETASONE FUROATE
     Indication: Asthma
     Dosage: OTHER QUANTITY : 2 PUFF(S);?FREQUENCY : TWICE A DAY;?
     Route: 048
     Dates: start: 20241029, end: 20241101

REACTIONS (3)
  - Headache [None]
  - Vomiting [None]
  - Urticaria [None]

NARRATIVE: CASE EVENT DATE: 20241102
